FAERS Safety Report 5332471-0 (Version None)
Quarter: 2007Q2

REPORT INFORMATION
  Report Type: 
  Country: None (occurrence: None)
  Receive Date: 20070523
  Receipt Date: 20070514
  Transmission Date: 20071010
  Serious: Yes (Other)
  Sender: FDA-Public Use
  Company Number: BE-JNJFOC-20070301101

PATIENT
  Sex: Male
  Weight: 63 kg

DRUGS (1)
  1. RISPERDAL [Suspect]
     Indication: ABNORMAL BEHAVIOUR
     Route: 048

REACTIONS (4)
  - GYNAECOMASTIA [None]
  - HYPOGONADISM MALE [None]
  - OBESITY [None]
  - SPONTANEOUS PENILE ERECTION [None]
